FAERS Safety Report 20867288 (Version 2)
Quarter: 2022Q3

REPORT INFORMATION
  Report Type: Spontaneous
  Country: JP (occurrence: JP)
  Receive Date: 20220524
  Receipt Date: 20220801
  Transmission Date: 20221027
  Serious: Yes (Other)
  Sender: FDA-Public Use
  Company Number: JP-PFIZER INC-202200721264

PATIENT
  Age: 80 Year
  Sex: Male
  Weight: 48 kg

DRUGS (13)
  1. PAXLOVID [Suspect]
     Active Substance: NIRMATRELVIR\RITONAVIR
     Indication: COVID-19 treatment
     Dosage: [PF-07321332 300 MG]/[RITONAVIR 100 MG]; 2X/DAY
     Route: 048
     Dates: start: 20220514, end: 20220515
  2. AMLODIPINE [Concomitant]
     Active Substance: AMLODIPINE BESYLATE
     Indication: Hypertension
     Dosage: 2.5 MG, 1X/DAY
     Route: 048
     Dates: end: 20220514
  3. PRAVASTATIN SODIUM [Concomitant]
     Active Substance: PRAVASTATIN SODIUM
     Indication: Hyperlipidaemia
     Dosage: 10 MG, 1X/DAY
     Route: 048
  4. DUTASTERIDE [Concomitant]
     Active Substance: DUTASTERIDE
     Indication: Benign prostatic hyperplasia
     Dosage: 0.5 MG, 1X/DAY
     Route: 048
  5. MIROGABALIN BESYLATE [Concomitant]
     Active Substance: MIROGABALIN BESYLATE
     Indication: Neuralgia
     Dosage: 5 MG, 2X/DAY
     Route: 048
     Dates: start: 20220101
  6. MAGNESIUM OXIDE [Concomitant]
     Active Substance: MAGNESIUM OXIDE
     Indication: Constipation
     Dosage: 330 MG, 3X/DAY
     Route: 048
     Dates: start: 20220110
  7. TERIPARATIDE ACETATE [Concomitant]
     Active Substance: TERIPARATIDE ACETATE
     Indication: Osteoporosis
     Dosage: 28.2 UG, 2X/WEEK
     Route: 058
     Dates: start: 20211222
  8. CABPIRIN [Concomitant]
     Indication: Cerebrovascular disorder
     Dosage: 1 DF, 1X/DAY
     Route: 048
  9. AMITIZA [Concomitant]
     Active Substance: LUBIPROSTONE
     Indication: Constipation
     Dosage: 24 UG, 2X/DAY
     Route: 048
     Dates: start: 20220203
  10. CELECOXIB [Concomitant]
     Active Substance: CELECOXIB
     Indication: Antiinflammatory therapy
     Dosage: 100 MG, 2X/DAY
     Route: 048
     Dates: start: 20220302
  11. CELECOXIB [Concomitant]
     Active Substance: CELECOXIB
     Indication: Analgesic therapy
  12. REBAMIPIDE [Concomitant]
     Active Substance: REBAMIPIDE
     Indication: Gastritis
     Dosage: 100 MG, 2X/DAY
     Route: 048
     Dates: start: 20220302
  13. MOSAPRIDE [Concomitant]
     Active Substance: MOSAPRIDE
     Indication: Chronic gastritis
     Dosage: 5 MG, 3X/DAY
     Route: 048
     Dates: start: 20220420

REACTIONS (25)
  - Drug ineffective [Recovered/Resolved]
  - Blood pressure diastolic decreased [Unknown]
  - Lymphocyte percentage decreased [Unknown]
  - Blood fibrinogen increased [Unknown]
  - Fibrin D dimer increased [Unknown]
  - Tri-iodothyronine free decreased [Unknown]
  - Blood bilirubin decreased [Unknown]
  - C-reactive protein increased [Unknown]
  - Blood glucose increased [Unknown]
  - Interleukin level increased [Unknown]
  - Activated partial thromboplastin time prolonged [Unknown]
  - Blood calcium decreased [Unknown]
  - Total cholesterol/HDL ratio decreased [Unknown]
  - Blood creatine phosphokinase decreased [Unknown]
  - Blood creatinine decreased [Unknown]
  - Blood sodium decreased [Unknown]
  - Gamma-glutamyltransferase decreased [Unknown]
  - Red cell distribution width increased [Unknown]
  - Blood urea increased [Unknown]
  - White blood cell count increased [Unknown]
  - Platelet count increased [Unknown]
  - Mycobacterium tuberculosis complex test positive [Unknown]
  - Blood lactate dehydrogenase increased [Unknown]
  - Blood potassium increased [Unknown]
  - Haemoglobin decreased [Unknown]

NARRATIVE: CASE EVENT DATE: 20220514
